FAERS Safety Report 6346859-2 (Version None)
Quarter: 2009Q3

REPORT INFORMATION
  Report Type: 
  Country: None (occurrence: None)
  Receive Date: 20090910
  Receipt Date: 20070426
  Transmission Date: 20100115
  Serious: Yes (Hospitalization, Disabling)
  Sender: FDA-Public Use
  Company Number: US-ASTRAZENECA-2006UW23885

PATIENT
  Age: 39 Year
  Sex: Female
  Weight: 80.7 kg

DRUGS (15)
  1. SEROQUEL [Suspect]
     Indication: DEPRESSION
     Dosage: 100 -200 MG
     Route: 048
     Dates: start: 20011201, end: 20030801
  2. SEROQUEL [Suspect]
     Indication: ANXIETY
     Dosage: 100 -200 MG
     Route: 048
     Dates: start: 20011201, end: 20030801
  3. SEROQUEL [Suspect]
     Indication: SLEEP DISORDER
     Dosage: 100 -200 MG
     Route: 048
     Dates: start: 20011201, end: 20030801
  4. SEROQUEL [Suspect]
     Indication: HALLUCINATION, AUDITORY
     Dosage: 100 -200 MG
     Route: 048
     Dates: start: 20011201, end: 20030801
  5. SEROQUEL [Suspect]
     Indication: HALLUCINATION, VISUAL
     Dosage: 100 -200 MG
     Route: 048
     Dates: start: 20011201, end: 20030801
  6. SEROQUEL [Suspect]
     Dosage: 75 MG - 150 MG
     Route: 048
     Dates: start: 20020408
  7. SEROQUEL [Suspect]
     Dosage: 75 MG - 150 MG
     Route: 048
     Dates: start: 20020408
  8. SEROQUEL [Suspect]
     Dosage: 75 MG - 150 MG
     Route: 048
     Dates: start: 20020408
  9. SEROQUEL [Suspect]
     Dosage: 75 MG - 150 MG
     Route: 048
     Dates: start: 20020408
  10. SEROQUEL [Suspect]
     Dosage: 75 MG - 150 MG
     Route: 048
     Dates: start: 20020408
  11. ZYPREXA [Suspect]
     Indication: SLEEP DISORDER
     Dosage: DOSE AS USED 100 MG, TOTAL DAILY DOSE 100 MG
     Dates: start: 20030101, end: 20050101
  12. ZYPREXA [Suspect]
     Dates: start: 20050506
  13. ZOLOFT [Concomitant]
     Indication: MENTAL DISORDER
     Route: 048
     Dates: start: 20020408
  14. CYMBALTA [Concomitant]
     Indication: MAJOR DEPRESSION
     Dosage: 30 MG QAM FOR 1 WEEK AND INCREASE 60 MG QAM
     Dates: start: 20050507
  15. ATIVAN [Concomitant]
     Dosage: 1 MG BID PRN FOR SIX DAYS
     Dates: start: 20050506

REACTIONS (3)
  - DEPRESSION [None]
  - MAJOR DEPRESSION [None]
  - TYPE 2 DIABETES MELLITUS [None]
